FAERS Safety Report 9542458 (Version 3)
Quarter: 2013Q4

REPORT INFORMATION
  Report Type: Spontaneous
  Country: JP (occurrence: JP)
  Receive Date: 20130923
  Receipt Date: 20131206
  Transmission Date: 20140711
  Serious: Yes (Other)
  Sender: FDA-Public Use
  Company Number: JP-PFIZER INC-2013249459

PATIENT
  Age: 1 Year
  Sex: Male
  Weight: 7 kg

DRUGS (13)
  1. ZOSYN [Suspect]
     Indication: PNEUMONIA
     Dosage: 787.5 MG, 3X/DAY
     Route: 041
     Dates: start: 20130815, end: 20130819
  2. ACETYLSALICYLIC ACID [Suspect]
     Dosage: 60 MG, 1X/DAY
     Route: 048
     Dates: start: 20110920, end: 20130819
  3. MUCOSOLVAN [Concomitant]
     Dosage: 6 MG/DAY
     Route: 048
     Dates: start: 20120904
  4. MUCODYNE [Concomitant]
     Dosage: 180 MG/DAY
     Route: 048
     Dates: start: 20111231
  5. MEPTIN [Concomitant]
     Dosage: 20 UG/DAY
     Route: 048
     Dates: start: 20120904
  6. ONON [Concomitant]
     Dosage: 45 MG/DAY
     Route: 048
     Dates: start: 20120905
  7. FUROSEMIDE [Concomitant]
     Indication: CARDIAC FAILURE
     Dosage: 15 MG/DAY
     Route: 048
     Dates: start: 20110917
  8. ALDACTONE-A [Concomitant]
     Indication: CARDIAC FAILURE
     Dosage: 15 MG/DAY
     Route: 048
     Dates: start: 20110917
  9. DORNER [Concomitant]
     Indication: PULMONARY HYPERTENSION
     Dosage: 12 UG/DAY
     Route: 048
     Dates: start: 20111226
  10. VOLIBRIS [Concomitant]
     Indication: PULMONARY HYPERTENSION
     Dosage: 0.5 MG/DAY
     Route: 048
     Dates: start: 20120718
  11. REVATIO [Concomitant]
     Indication: PULMONARY HYPERTENSION
     Dosage: 12 MG/DAY
     Route: 048
     Dates: start: 20120106
  12. NEWTOLIDE [Concomitant]
     Indication: CARDIAC FAILURE
     Dosage: 10 MG/DAY
     Route: 048
     Dates: start: 20120615
  13. RENIVACE [Concomitant]
     Indication: CARDIAC FAILURE
     Dosage: 0.4 MG/DAY
     Route: 048
     Dates: start: 20120922

REACTIONS (1)
  - Hepatic function abnormal [Recovered/Resolved]
